FAERS Safety Report 24443654 (Version 2)
Quarter: 2024Q4

REPORT INFORMATION
  Report Type: Report from Study
  Country: US (occurrence: US)
  Receive Date: 20241016
  Receipt Date: 20241017
  Transmission Date: 20250115
  Serious: No
  Sender: ROCHE
  Company Number: US-ROCHE-1411088

PATIENT
  Sex: Female

DRUGS (21)
  1. RITUXAN [Suspect]
     Active Substance: RITUXIMAB
     Indication: Systemic lupus erythematosus
     Dosage: DATE OF TREATMENT: 12/OCT/2016
     Route: 042
     Dates: start: 20070412
  2. RITUXAN [Suspect]
     Active Substance: RITUXIMAB
     Indication: Arteritis
  3. RITUXAN [Suspect]
     Active Substance: RITUXIMAB
     Indication: Thrombotic microangiopathy
  4. RITUXAN [Suspect]
     Active Substance: RITUXIMAB
     Indication: Thrombotic thrombocytopenic purpura
  5. RITUXAN [Suspect]
     Active Substance: RITUXIMAB
     Indication: Systemic scleroderma
  6. RITUXAN [Suspect]
     Active Substance: RITUXIMAB
     Indication: Interstitial lung disease
  7. RITUXAN [Suspect]
     Active Substance: RITUXIMAB
     Indication: Systemic lupus erythematosus
  8. CELLCEPT [Suspect]
     Active Substance: MYCOPHENOLATE MOFETIL
     Indication: Systemic lupus erythematosus
     Route: 065
  9. CELLCEPT [Suspect]
     Active Substance: MYCOPHENOLATE MOFETIL
     Indication: Arteritis
  10. CYTOXAN [Concomitant]
     Active Substance: CYCLOPHOSPHAMIDE
  11. TYLENOL [Concomitant]
     Active Substance: ACETAMINOPHEN
     Route: 048
  12. BENADRYL [Concomitant]
     Active Substance: DIPHENHYDRAMINE HYDROCHLORIDE
     Route: 042
  13. PREDNISONE [Concomitant]
     Active Substance: PREDNISONE
  14. PLAQUENIL [Concomitant]
     Active Substance: HYDROXYCHLOROQUINE SULFATE
  15. PERCOCET [Concomitant]
     Active Substance: ACETAMINOPHEN\OXYCODONE HYDROCHLORIDE
  16. CRESTOR [Concomitant]
     Active Substance: ROSUVASTATIN CALCIUM
  17. ENTRESTO [Concomitant]
     Active Substance: SACUBITRIL\VALSARTAN
  18. OZEMPIC [Concomitant]
     Active Substance: SEMAGLUTIDE
  19. ZOLOFT [Concomitant]
     Active Substance: SERTRALINE HYDROCHLORIDE
  20. DESYREL [Concomitant]
     Active Substance: TRAZODONE HYDROCHLORIDE
  21. AMBIEN [Concomitant]
     Active Substance: ZOLPIDEM TARTRATE

REACTIONS (4)
  - Off label use [Unknown]
  - Pain in extremity [Unknown]
  - Pain [Unknown]
  - Skin ulcer [Unknown]

NARRATIVE: CASE EVENT DATE: 20100226
